FAERS Safety Report 5475045-3 (Version None)
Quarter: 2007Q4

REPORT INFORMATION
  Report Type: 
  Country: None (occurrence: None)
  Receive Date: 20071002
  Receipt Date: 20070925
  Transmission Date: 20080405
  Serious: Yes (Other)
  Sender: FDA-Public Use
  Company Number: US-ELI_LILLY_AND_COMPANY-US200709006394

PATIENT
  Sex: Male

DRUGS (3)
  1. EXENATIDE [Suspect]
     Dosage: 5 UG, UNKNOWN
     Route: 058
     Dates: start: 20070924
  2. GLUCOTROL [Concomitant]
     Indication: DIABETES MELLITUS
     Dosage: UNK, UNKNOWN
     Route: 065
  3. GLYBURIDE [Concomitant]
     Indication: DIABETES MELLITUS
     Dosage: UNK, UNKNOWN
     Route: 065

REACTIONS (2)
  - BLINDNESS [None]
  - BLOOD GLUCOSE INCREASED [None]
